FAERS Safety Report 8276318-1 (Version None)
Quarter: 2012Q2

REPORT INFORMATION
  Report Type: 
  Country: None (occurrence: None)
  Receive Date: 20120412
  Receipt Date: 20120404
  Transmission Date: 20120825
  Serious: Yes (Other)
  Sender: FDA-Public Use
  Company Number: PHHY2012BR020939

PATIENT
  Age: 74 Year
  Sex: Female

DRUGS (5)
  1. CARBAMAZEPINE [Suspect]
  2. ATENOLOL [Concomitant]
     Indication: HYPERTENSION
     Dosage: 50 MG, ONE TABLET IN THE MORNING
     Route: 048
  3. TEGRETOL-XR [Suspect]
     Indication: TRIGEMINAL NEURALGIA
     Dosage: 400MG TABLET, 3 TABLETS DAILY
     Route: 048
  4. TEGRETOL-XR [Suspect]
     Dosage: 200 MG,
     Route: 048
  5. AMLODIPINE [Concomitant]
     Indication: HYPERTENSION
     Dosage: ONE TABLET AT NIGHT
     Route: 048

REACTIONS (5)
  - WEIGHT DECREASED [None]
  - VOMITING [None]
  - DIZZINESS [None]
  - BREAST CANCER [None]
  - DECREASED APPETITE [None]
